FAERS Safety Report 4417487-0 (Version None)
Quarter: 2004Q3

REPORT INFORMATION
  Report Type: 
  Country: None (occurrence: None)
  Receive Date: 20040804
  Receipt Date: 20040720
  Transmission Date: 20050211
  Serious: Yes (Other)
  Sender: FDA-Public Use
  Company Number: 04-07-1038

PATIENT
  Age: 57 Year
  Sex: Male

DRUGS (7)
  1. PACLITAXEL [Suspect]
     Indication: KAPOSI'S SARCOMA
     Dosage: 100-60MG/M2 INTRAVENOUS
     Route: 042
  2. INDINAVIR [Suspect]
     Indication: KAPOSI'S SARCOMA
     Dosage: 800MG BID
  3. STAVUDINE [Suspect]
     Indication: KAPOSI'S SARCOMA
     Dosage: 40MG BID
  4. LAMIVUDINE [Suspect]
     Indication: KAPOSI'S SARCOMA
     Dosage: 150MG BID
  5. RITONAVIR [Suspect]
     Indication: KAPOSI'S SARCOMA
     Dosage: 200MG BID
  6. NEUPOGEN [Concomitant]
  7. ANTIBIOTICS [Concomitant]

REACTIONS (11)
  - ALOPECIA UNIVERSALIS [None]
  - ASCITES [None]
  - BLOOD CULTURE POSITIVE [None]
  - DISEASE PROGRESSION [None]
  - KAPOSI'S SARCOMA [None]
  - LYMPHOEDEMA [None]
  - PLATELET COUNT DECREASED [None]
  - PYREXIA [None]
  - STAPHYLOCOCCAL INFECTION [None]
  - TREATMENT NONCOMPLIANCE [None]
  - WHITE BLOOD CELL COUNT DECREASED [None]
